FAERS Safety Report 20783264 (Version 2)
Quarter: 2022Q2

REPORT INFORMATION
  Report Type: Spontaneous
  Country: US (occurrence: US)
  Receive Date: 20220504
  Receipt Date: 20220609
  Transmission Date: 20220721
  Serious: No
  Sender: FDA-Public Use
  Company Number: US-PFIZER INC-202200643381

PATIENT
  Age: 43 Year
  Sex: Male
  Weight: 69.4 kg

DRUGS (3)
  1. PAXLOVID [Suspect]
     Active Substance: NIRMATRELVIR\RITONAVIR
     Indication: COVID-19 treatment
     Dosage: (2 150MG NIRMATRELVIR EACH DOSE AND 1 100MG RITONAVIR TABLET BY MOUTH)
     Route: 048
     Dates: start: 20220405, end: 20220410
  2. ATORVASTATIN [Concomitant]
     Active Substance: ATORVASTATIN
     Indication: Blood cholesterol
     Dosage: 20 MG
  3. ADVIL [Concomitant]
     Active Substance: IBUPROFEN
     Indication: Headache
     Dosage: 200 MG, AS NEEDED

REACTIONS (1)
  - COVID-19 [Recovering/Resolving]

NARRATIVE: CASE EVENT DATE: 20220415
